FAERS Safety Report 13165836 (Version 3)
Quarter: 2017Q2

REPORT INFORMATION
  Report Type: Spontaneous
  Country: FR (occurrence: FR)
  Receive Date: 20170131
  Receipt Date: 20170609
  Transmission Date: 20170830
  Serious: Yes (Death, Other)
  Sender: FDA-Public Use
  Company Number: FR-SUN PHARMACEUTICAL INDUSTRIES LTD-2017R1-132286

PATIENT
  Sex: Male

DRUGS (6)
  1. TACROLIMUS. [Suspect]
     Active Substance: TACROLIMUS
     Indication: PRODUCT USED FOR UNKNOWN INDICATION
     Dosage: UNK
     Route: 065
     Dates: start: 201503
  2. METHYLPREDNISOLONE. [Suspect]
     Active Substance: METHYLPREDNISOLONE
     Indication: PRODUCT USED FOR UNKNOWN INDICATION
     Dosage: UNK
     Route: 065
     Dates: start: 201503
  3. COTRIMOXAZOLE [Suspect]
     Active Substance: SULFAMETHOXAZOLE\TRIMETHOPRIM
     Indication: INFECTION PROPHYLAXIS
     Dosage: UNK
     Route: 048
     Dates: start: 201503
  4. BASILIXIMAB [Suspect]
     Active Substance: BASILIXIMAB
     Indication: PRODUCT USED FOR UNKNOWN INDICATION
     Dosage: UNK
     Route: 065
     Dates: start: 201503
  5. CAPSOFUNGIN [Suspect]
     Active Substance: CASPOFUNGIN
     Indication: INFECTION PROPHYLAXIS
     Dosage: 50 MG, DAILY
     Route: 042
     Dates: start: 201503
  6. TAZOCILLINE [Suspect]
     Active Substance: PIPERACILLIN SODIUM\TAZOBACTAM SODIUM
     Indication: INFECTION PROPHYLAXIS
     Dosage: UNK
     Route: 042
     Dates: start: 201503

REACTIONS (5)
  - Hyperthermia [Unknown]
  - Fungaemia [Fatal]
  - Multiple organ dysfunction syndrome [Fatal]
  - Septic shock [Unknown]
  - Drug resistance [Unknown]

NARRATIVE: CASE EVENT DATE: 201503
